FAERS Safety Report 9393740 (Version 1)
Quarter: 2013Q3

REPORT INFORMATION
  Report Type: Spontaneous
  Country: DE (occurrence: DE)
  Receive Date: 20130710
  Receipt Date: 20130710
  Transmission Date: 20140515
  Serious: Yes (Other)
  Sender: FDA-Public Use
  Company Number: DE-TEVA-418207USA

PATIENT
  Age: 68 Year
  Sex: 0

DRUGS (4)
  1. BENDAMUSTIN [Suspect]
     Indication: MANTLE CELL LYMPHOMA
  2. RITUXIMAB [Suspect]
     Indication: MANTLE CELL LYMPHOMA
  3. VINCRISTINE [Concomitant]
     Indication: MANTLE CELL LYMPHOMA
  4. PREDNISOLONE [Concomitant]
     Indication: MANTLE CELL LYMPHOMA

REACTIONS (4)
  - Atrial fibrillation [Unknown]
  - Cytokine release syndrome [Unknown]
  - Dermatitis exfoliative [Recovered/Resolved]
  - Infusion related reaction [Unknown]
